FAERS Safety Report 6528826-9 (Version None)
Quarter: 2010Q1

REPORT INFORMATION
  Report Type: 
  Country: None (occurrence: None)
  Receive Date: 20100106
  Receipt Date: 20091231
  Transmission Date: 20100710
  Serious: Yes (Hospitalization)
  Sender: FDA-Public Use
  Company Number: US-ELI_LILLY_AND_COMPANY-US200912006373

PATIENT
  Sex: Female

DRUGS (4)
  1. HUMULIN R [Suspect]
     Indication: DIABETES MELLITUS
     Dosage: 7 U, EACH MORNING
     Dates: start: 19840101
  2. HUMULIN R [Suspect]
     Dosage: 8 U, EACH EVENING
     Dates: start: 19840101
  3. HUMULIN N [Suspect]
     Indication: DIABETES MELLITUS
     Dosage: 17 U, EACH MORNING
     Dates: start: 19840101
  4. HUMULIN N [Suspect]
     Dosage: 18 U, EACH EVENING
     Dates: start: 19840101

REACTIONS (5)
  - BLOOD GLUCOSE DECREASED [None]
  - BLOOD GLUCOSE FLUCTUATION [None]
  - FEELING ABNORMAL [None]
  - HYPERHIDROSIS [None]
  - VISION BLURRED [None]
